FAERS Safety Report 8893090 (Version 1)
Quarter: 2012Q4

REPORT INFORMATION
  Report Type: 
  Country: US (occurrence: US)
  Receive Date: 20121107
  Receipt Date: 20121107
  Transmission Date: 20130627
  Serious: Yes (Other)
  Sender: FDA-Public Use
  Company Number: US-AMGEN-USASP2011054021

PATIENT
  Age: 68 Year
  Sex: Female

DRUGS (11)
  1. ENBREL [Suspect]
     Indication: PRODUCT USED FOR UNKNOWN INDICATION
     Dosage: 50 mg, qwk
     Route: 058
  2. PLAQUENIL                          /00072603/ [Concomitant]
     Dosage: 200 mg, UNK
     Route: 048
  3. NIASPAN [Concomitant]
     Dosage: 500 mg, UNK
     Route: 048
  4. SYNTHROID [Concomitant]
     Dosage: 88 mug, UNK
     Route: 048
  5. DIOVAN [Concomitant]
     Dosage: 80 mg, UNK
     Route: 048
  6. ARAVA [Concomitant]
     Dosage: 10 mg, UNK
     Route: 048
  7. TRIAMTEREEN/HYDROCHLOOTTHIAZIDE [Concomitant]
     Route: 048
  8. CELEXA                             /00582602/ [Concomitant]
     Dosage: 10 mg, UNK
     Route: 048
  9. KCL [Concomitant]
  10. VITAMIN D /00107901/ [Concomitant]
     Dosage: 2000 IU, UNK
     Route: 048
  11. GINKOBA [Concomitant]
     Dosage: 40 mg, UNK
     Route: 048

REACTIONS (2)
  - Arthritis infective [Unknown]
  - Upper respiratory tract infection [Unknown]
